FAERS Safety Report 19059560 (Version 1)
Quarter: 2021Q1

REPORT INFORMATION
  Report Type: Spontaneous
  Country: US (occurrence: US)
  Receive Date: 20210326
  Receipt Date: 20210326
  Transmission Date: 20210420
  Serious: No
  Sender: FDA-Public Use
  Company Number: US-SA-2021SA100499

PATIENT
  Age: 59 Year
  Sex: Female

DRUGS (18)
  1. SUPREP BOWEL PREP [Concomitant]
     Active Substance: MAGNESIUM SULFATE\POTASSIUM SULFATE\SODIUM SULFATE
  2. IBUPROFEN. [Concomitant]
     Active Substance: IBUPROFEN
  3. MESALAMINE. [Concomitant]
     Active Substance: MESALAMINE
  4. DOXEPIN HCL [Concomitant]
     Active Substance: DOXEPIN HYDROCHLORIDE
  5. ADDERALL [Concomitant]
     Active Substance: AMPHETAMINE ASPARTATE\AMPHETAMINE SULFATE\DEXTROAMPHETAMINE SACCHARATE\DEXTROAMPHETAMINE SULFATE
  6. PENICILLIN VK [Concomitant]
     Active Substance: PENICILLIN V POTASSIUM
  7. CYCLOBENZAPRIN [Concomitant]
     Active Substance: CYCLOBENZAPRINE
  8. PENTAZOCINE AND NALOXONE [Concomitant]
     Active Substance: NALOXONE HYDROCHLORIDE\PENTAZOCINE HYDROCHLORIDE
  9. SUCRALFATE. [Concomitant]
     Active Substance: SUCRALFATE
  10. OXYCODONE [Concomitant]
     Active Substance: OXYCODONE
  11. OXYCODONE/APAP [Concomitant]
     Active Substance: ACETAMINOPHEN\OXYCODONE HYDROCHLORIDE
  12. SMZ?TMP DS [Concomitant]
     Active Substance: SULFAMETHOXAZOLE\TRIMETHOPRIM
  13. LINZESS [Concomitant]
     Active Substance: LINACLOTIDE
  14. PANTOPRAZOLE [Concomitant]
     Active Substance: PANTOPRAZOLE
  15. GABAPENTIN. [Concomitant]
     Active Substance: GABAPENTIN
  16. PROMETHAZINE [Concomitant]
     Active Substance: PROMETHAZINE HYDROCHLORIDE
  17. DUPIXENT [Suspect]
     Active Substance: DUPILUMAB
     Indication: DERMATITIS ATOPIC
     Dosage: 300 MG, QOW
     Route: 058
     Dates: start: 20180830
  18. CEFDINIR. [Concomitant]
     Active Substance: CEFDINIR

REACTIONS (2)
  - Rash [Not Recovered/Not Resolved]
  - Product dose omission issue [Unknown]

NARRATIVE: CASE EVENT DATE: 202102
